FAERS Safety Report 24899796 (Version 2)
Quarter: 2025Q1

REPORT INFORMATION
  Report Type: Report from Study
  Country: CA (occurrence: CA)
  Receive Date: 20250129
  Receipt Date: 20250328
  Transmission Date: 20250409
  Serious: Yes (Other)
  Sender: JOHNSON AND JOHNSON
  Company Number: CA-JNJFOC-20250167964

PATIENT
  Age: 16 Year
  Sex: Female
  Weight: 46 kg

DRUGS (3)
  1. REMICADE [Suspect]
     Active Substance: INFLIXIMAB
     Indication: Crohn^s disease
     Route: 041
     Dates: start: 20241211
  2. REMICADE [Suspect]
     Active Substance: INFLIXIMAB
     Route: 041
     Dates: start: 20241211
  3. REMICADE [Suspect]
     Active Substance: INFLIXIMAB
     Route: 041

REACTIONS (4)
  - Crohn^s disease [Unknown]
  - Drug level decreased [Unknown]
  - Incorrect drug administration rate [Unknown]
  - Off label use [Unknown]
